FAERS Safety Report 4399796-7 (Version None)
Quarter: 2004Q3

REPORT INFORMATION
  Report Type: 
  Country: None (occurrence: None)
  Receive Date: 20040714
  Receipt Date: 20040701
  Transmission Date: 20050211
  Serious: Yes (Death, Other)
  Sender: FDA-Public Use
  Company Number: 2004044318

PATIENT
  Age: 70 Year
  Sex: Male

DRUGS (4)
  1. NORVASC [Suspect]
     Indication: ILL-DEFINED DISORDER
     Dosage: 5 MG (1 IN 1 D), ORAL
     Route: 048
  2. SPIRONOLACTONE [Suspect]
     Indication: ILL-DEFINED DISORDER
     Dosage: ORAL
     Route: 048
     Dates: start: 20040630
  3. VALSARTAN (VALSARTAN) [Suspect]
     Indication: ILL-DEFINED DISORDER
  4. TELMISARTAN (TELMISARTAN) [Suspect]
     Indication: ILL-DEFINED DISORDER

REACTIONS (5)
  - CARDIAC FAILURE [None]
  - CEREBROVASCULAR ACCIDENT [None]
  - PRIMARY HYPERALDOSTERONISM [None]
  - RENAL NEOPLASM [None]
  - SUDDEN DEATH [None]
